FAERS Safety Report 23257679 (Version 2)
Quarter: 2023Q4

REPORT INFORMATION
  Report Type: Report from Study
  Country: MX (occurrence: MX)
  Receive Date: 20231204
  Receipt Date: 20231211
  Transmission Date: 20240110
  Serious: Yes (Life-Threatening, Hospitalization)
  Sender: FDA-Public Use
  Company Number: MX-002147023-NVSC2023MX256593

PATIENT
  Age: 64 Year
  Sex: Male

DRUGS (2)
  1. ENTRESTO [Suspect]
     Active Substance: SACUBITRIL\VALSARTAN
     Indication: Cardiac failure
     Dosage: 100 MG, Q12H
     Route: 048
     Dates: start: 202307, end: 20231129
  2. DAPAGLIFLOZIN [Concomitant]
     Active Substance: DAPAGLIFLOZIN
     Indication: Diabetes mellitus
     Dosage: 1 DOSAGE FORM, Q24H
     Route: 048

REACTIONS (7)
  - Cerebral infarction [Recovering/Resolving]
  - Cardiac disorder [Not Recovered/Not Resolved]
  - Aphasia [Recovering/Resolving]
  - Gait inability [Not Recovered/Not Resolved]
  - Apparent death [Unknown]
  - Daydreaming [Unknown]
  - Malaise [Unknown]

NARRATIVE: CASE EVENT DATE: 20231022
